FAERS Safety Report 8353034-9 (Version None)
Quarter: 2012Q2

REPORT INFORMATION
  Report Type: 
  Country: None (occurrence: None)
  Receive Date: 20120511
  Receipt Date: 20120430
  Transmission Date: 20120825
  Serious: Yes (Hospitalization)
  Sender: FDA-Public Use
  Company Number: DE-PERRIGO-12DE003742

PATIENT
  Age: 77 Year
  Sex: Female

DRUGS (1)
  1. IBUPROFEN [Suspect]
     Indication: HEADACHE
     Dosage: UNK
     Route: 048

REACTIONS (6)
  - INTESTINAL ISCHAEMIA [None]
  - HAEMOGLOBIN DECREASED [None]
  - DIVERTICULUM INTESTINAL HAEMORRHAGIC [None]
  - GASTROINTESTINAL HAEMORRHAGE [None]
  - PALLOR [None]
  - HAEMATOCHEZIA [None]
